FAERS Safety Report 22074735 (Version 1)
Quarter: 2023Q1

REPORT INFORMATION
  Report Type: Spontaneous
  Country: US (occurrence: None)
  Receive Date: 20230308
  Receipt Date: 20230308
  Transmission Date: 20230418
  Serious: Yes (Hospitalization, Other)
  Sender: FDA-Public Use
  Company Number: 2023A052412

PATIENT
  Age: 29073 Day
  Sex: Male
  Weight: 77.1 kg

DRUGS (8)
  1. LYNPARZA [Suspect]
     Active Substance: OLAPARIB
     Indication: Product used for unknown indication
     Route: 048
     Dates: end: 202210
  2. XTANDI [Suspect]
     Active Substance: ENZALUTAMIDE
     Indication: Product used for unknown indication
     Route: 048
     Dates: start: 20210412, end: 20221021
  3. ARANESP [Concomitant]
     Active Substance: DARBEPOETIN ALFA
  4. XGEVA [Concomitant]
     Active Substance: DENOSUMAB
  5. PREDNISONE [Concomitant]
     Active Substance: PREDNISONE
  6. UNSPECIFIED INGREDIENT [Concomitant]
     Active Substance: UNSPECIFIED INGREDIENT
  7. SIMVASTATIN [Concomitant]
     Active Substance: SIMVASTATIN
  8. LEVOTHYROXINE [Concomitant]
     Active Substance: LEVOTHYROXINE

REACTIONS (6)
  - Deep vein thrombosis [Unknown]
  - Myelosuppression [Unknown]
  - Pneumonia [Unknown]
  - White blood cell count decreased [Unknown]
  - COVID-19 [Unknown]
  - Malaise [Unknown]

NARRATIVE: CASE EVENT DATE: 20221017
